FAERS Safety Report 6497391-7 (Version None)
Quarter: 2009Q4

REPORT INFORMATION
  Report Type: 
  Country: None (occurrence: None)
  Receive Date: 20091215
  Receipt Date: 20091204
  Transmission Date: 20100525
  Serious: Yes (Disabling)
  Sender: FDA-Public Use
  Company Number: GB-MILLENNIUM PHARMACEUTICALS, INC.-2009-04888

PATIENT

DRUGS (7)
  1. VELCADE [Suspect]
     Indication: MULTIPLE MYELOMA
     Dosage: 2 MG, CYCLIC
     Route: 042
     Dates: start: 20090915, end: 20091023
  2. DEXAMETHASONE TAB [Concomitant]
     Dosage: 200 MG, CYCLIC
     Dates: start: 20090915
  3. RANITIDINE [Concomitant]
     Dosage: 150 MG, BID
     Dates: start: 20090915
  4. SOLPADOL [Concomitant]
     Indication: PAIN
     Dosage: UNK
  5. WARFARIN SODIUM [Concomitant]
     Dosage: UNK
     Dates: start: 20071108
  6. ALLOPURINOL [Concomitant]
     Indication: TUMOUR LYSIS SYNDROME
     Dosage: UNK
     Dates: start: 20090915, end: 20090915
  7. SENNA-MINT WAF [Concomitant]
     Dosage: UNK

REACTIONS (4)
  - CONSTIPATION [None]
  - DRUG INEFFECTIVE [None]
  - FATIGUE [None]
  - HYPOAESTHESIA [None]
